FAERS Safety Report 25283196 (Version 1)
Quarter: 2025Q2

REPORT INFORMATION
  Report Type: Spontaneous
  Country: US (occurrence: None)
  Receive Date: 20250508
  Receipt Date: 20250508
  Transmission Date: 20250716
  Serious: No
  Sender: FDA-CTU
  Company Number: None

PATIENT
  Sex: Female

DRUGS (2)
  1. SKYRIZI [Suspect]
     Active Substance: RISANKIZUMAB-RZAA
     Indication: Inflammatory bowel disease
     Route: 058
     Dates: start: 20241231
  2. OXYCODONE [Suspect]
     Active Substance: OXYCODONE

REACTIONS (5)
  - Depression [None]
  - Pneumonia [None]
  - Bronchitis [None]
  - Small intestinal obstruction [None]
  - Crohn^s disease [None]
